FAERS Safety Report 5262370-4 (Version None)
Quarter: 2007Q1

REPORT INFORMATION
  Report Type: 
  Country: None (occurrence: None)
  Receive Date: 20070308
  Receipt Date: 20070308
  Transmission Date: 20070707
  Serious: Yes (Hospitalization)
  Sender: FDA-Public Use
  Company Number: None

PATIENT
  Age: 30 Year
  Sex: Male

DRUGS (2)
  1. DAPTOMYCIN [Suspect]
     Indication: ENDOCARDITIS
     Dosage: 400MG IV Q24 (6 MG/KG)
     Route: 042
     Dates: start: 20070127, end: 20070201
  2. DAPTOMYCIN [Suspect]
     Indication: STAPHYLOCOCCAL INFECTION
     Dosage: 400MG IV Q24 (6 MG/KG)
     Route: 042
     Dates: start: 20070127, end: 20070201

REACTIONS (1)
  - RHABDOMYOLYSIS [None]
